FAERS Safety Report 22303603 (Version 2)
Quarter: 2023Q2

REPORT INFORMATION
  Report Type: Report from Study
  Country: US (occurrence: US)
  Receive Date: 20230510
  Receipt Date: 20230517
  Transmission Date: 20230722
  Serious: Yes (Hospitalization, Other)
  Sender: FDA-Public Use
  Company Number: US-GILEAD-2023-0622582

PATIENT
  Age: 24 Year
  Sex: Female

DRUGS (4)
  1. AMBRISENTAN [Suspect]
     Active Substance: AMBRISENTAN
     Indication: Pulmonary arterial hypertension
     Dosage: 10 MG, QD
     Route: 065
     Dates: start: 201212
  2. TYVASO [Suspect]
     Active Substance: TREPROSTINIL
     Indication: Pulmonary arterial hypertension
     Dosage: 84 ?G, QID, INHALATION
     Route: 055
     Dates: start: 20210301
  3. TYVASO [Suspect]
     Active Substance: TREPROSTINIL
     Dosage: 14 MG, TID
     Route: 065
     Dates: start: 202103
  4. TADALAFIL [Suspect]
     Active Substance: TADALAFIL
     Indication: Pulmonary arterial hypertension
     Dosage: 40 MG, QD
     Route: 065
     Dates: start: 202104

REACTIONS (5)
  - Hypervolaemia [Unknown]
  - Cardiac failure [Unknown]
  - Oxygen consumption increased [Recovering/Resolving]
  - Flushing [Unknown]
  - Contusion [Unknown]
